FAERS Safety Report 12750928 (Version 1)
Quarter: 2016Q3

REPORT INFORMATION
  Report Type: Spontaneous
  Country: US (occurrence: US)
  Receive Date: 20160916
  Receipt Date: 20160916
  Transmission Date: 20161109
  Serious: Yes (Other)
  Sender: FDA-Public Use
  Company Number: US-009507513-1609USA006639

PATIENT
  Age: 67 Year
  Sex: Male

DRUGS (4)
  1. INTEGRILIN [Suspect]
     Active Substance: EPTIFIBATIDE
     Indication: THROMBOSIS PROPHYLAXIS
     Dosage: 9 MG, ONCE
  2. INTEGRILIN [Suspect]
     Active Substance: EPTIFIBATIDE
     Dosage: 9 MG, ONCE
  3. HEPARIN [Concomitant]
     Active Substance: HEPARIN SODIUM
     Dosage: UNK
     Route: 041
  4. INTEGRILIN [Suspect]
     Active Substance: EPTIFIBATIDE
     Dosage: 2 MCG/KG/MIN
     Route: 041

REACTIONS (1)
  - Thrombocytopenia [Recovering/Resolving]
